FAERS Safety Report 11067491 (Version 1)
Quarter: 2015Q2

REPORT INFORMATION
  Report Type: Report from Study
  Country: FR (occurrence: FR)
  Receive Date: 20150427
  Receipt Date: 20150427
  Transmission Date: 20150821
  Serious: Yes (Hospitalization)
  Sender: FDA-Public Use
  Company Number: FR-ROCHE-1567365

PATIENT
  Sex: Male

DRUGS (9)
  1. CORTANCYL [Concomitant]
     Active Substance: PREDNISONE
     Dosage: AT SECOND INFUSION
     Route: 065
  2. CORTANCYL [Concomitant]
     Active Substance: PREDNISONE
     Dosage: AT FIRST INFUSION
     Route: 065
  3. RITUXIMAB [Suspect]
     Active Substance: RITUXIMAB
     Indication: RHEUMATOID ARTHRITIS
     Route: 065
     Dates: start: 20080910
  4. RITUXIMAB [Suspect]
     Active Substance: RITUXIMAB
     Route: 065
     Dates: start: 20100922
  5. CYCLOPHOSPHAMIDE. [Concomitant]
     Active Substance: CYCLOPHOSPHAMIDE
  6. CORTANCYL [Concomitant]
     Active Substance: PREDNISONE
     Dosage: AT FIRST INFUSION
     Route: 065
  7. MYCOPHENOLATE MOFETIL. [Concomitant]
     Active Substance: MYCOPHENOLATE MOFETIL
     Route: 065
  8. RITUXIMAB [Suspect]
     Active Substance: RITUXIMAB
     Route: 065
     Dates: start: 20101006
  9. RITUXIMAB [Suspect]
     Active Substance: RITUXIMAB
     Route: 065
     Dates: start: 20080924

REACTIONS (11)
  - Pulmonary fibrosis [Unknown]
  - Lung disorder [Unknown]
  - Sepsis [Recovered/Resolved]
  - Erysipelas [Recovered/Resolved]
  - Lymphoedema [Recovered/Resolved]
  - Sleep apnoea syndrome [Not Recovered/Not Resolved]
  - Lung infiltration [Unknown]
  - Respiratory disorder [Unknown]
  - Stasis dermatitis [Recovered/Resolved]
  - Cardiac failure [Recovered/Resolved]
  - Dyspnoea [Recovered/Resolved with Sequelae]

NARRATIVE: CASE EVENT DATE: 20090427
